FAERS Safety Report 23205755 (Version 3)
Quarter: 2023Q4

REPORT INFORMATION
  Report Type: Spontaneous
  Country: US (occurrence: US)
  Receive Date: 20231120
  Receipt Date: 20231130
  Transmission Date: 20240110
  Serious: Yes (Other)
  Sender: FDA-Public Use
  Company Number: US-JNJFOC-20231133557

PATIENT
  Sex: Female

DRUGS (4)
  1. UPTRAVI [Suspect]
     Active Substance: SELEXIPAG
     Indication: Pulmonary hypertension
     Route: 048
     Dates: start: 20230811
  2. UPTRAVI [Suspect]
     Active Substance: SELEXIPAG
     Route: 048
  3. AMBRISENTAN [Suspect]
     Active Substance: AMBRISENTAN
     Indication: Pulmonary hypertension
     Route: 065
     Dates: start: 20230321
  4. ELIQUIS [Concomitant]
     Active Substance: APIXABAN
     Indication: Pulmonary hypertension

REACTIONS (11)
  - Angina pectoris [Recovered/Resolved]
  - Oedema peripheral [Unknown]
  - Dyspnoea exertional [Unknown]
  - Fatigue [Unknown]
  - Nausea [Recovered/Resolved]
  - Pain [Recovered/Resolved]
  - Pain in extremity [Recovered/Resolved]
  - Chest pain [Recovered/Resolved]
  - Decreased appetite [Unknown]
  - Taste disorder [Recovered/Resolved]
  - Headache [Unknown]

NARRATIVE: CASE EVENT DATE: 20230811
